FAERS Safety Report 8496513 (Version 3)
Quarter: 2013Q1

REPORT INFORMATION
  Report Type: Report from Study
  Country: US (occurrence: US)
  Receive Date: 20120405
  Receipt Date: 20130211
  Transmission Date: 20140127
  Serious: Yes (Hospitalization)
  Sender: FDA-Public Use
  Company Number: US-ABBOTT-12P-163-0919630-00

PATIENT
  Age: 27 None
  Sex: Male
  Weight: 79 kg

DRUGS (6)
  1. HUMIRA 40 MG/0.8 ML PEN [Suspect]
     Indication: COLITIS ULCERATIVE
     Route: 058
     Dates: start: 20120111, end: 20120307
  2. HUMIRA 40 MG/0.8 ML PEN [Suspect]
     Route: 058
     Dates: start: 20120307, end: 20120420
  3. PENTASA [Concomitant]
     Indication: PRODUCT USED FOR UNKNOWN INDICATION
  4. PREDNISONE [Concomitant]
     Indication: PRODUCT USED FOR UNKNOWN INDICATION
     Dosage: DAILY
  5. PREDNISONE [Concomitant]
     Dosage: DAILY WITH 5MG EVERY 5 DAYS OR SO TAPER
  6. PREDNISONE [Concomitant]
     Dosage: DAILY, CURRENTLY

REACTIONS (14)
  - Colitis [Not Recovered/Not Resolved]
  - Pyrexia [Unknown]
  - Pyrexia [Unknown]
  - Chills [Unknown]
  - Chills [Unknown]
  - Headache [Unknown]
  - Headache [Unknown]
  - Nausea [Unknown]
  - Nausea [Unknown]
  - Hyperhidrosis [Unknown]
  - Hyperhidrosis [Unknown]
  - Hyperhidrosis [Unknown]
  - Hyperhidrosis [Unknown]
  - Drug ineffective [Unknown]
